FAERS Safety Report 24632378 (Version 1)
Quarter: 2024Q4

REPORT INFORMATION
  Report Type: Spontaneous
  Country: ES (occurrence: ES)
  Receive Date: 20241118
  Receipt Date: 20241118
  Transmission Date: 20250114
  Serious: Yes (Other)
  Sender: ABBVIE
  Company Number: ES-ABBVIE-6006894

PATIENT
  Age: 49 Year
  Sex: Male

DRUGS (1)
  1. SILODOSIN [Suspect]
     Active Substance: SILODOSIN
     Indication: Benign prostatic hyperplasia
     Route: 050
     Dates: start: 20240514, end: 20240610

REACTIONS (1)
  - Ejaculation failure [Recovered/Resolved]

NARRATIVE: CASE EVENT DATE: 20240514
